FAERS Safety Report 9904838 (Version 1)
Quarter: 2014Q1

REPORT INFORMATION
  Report Type: Spontaneous
  Country: US (occurrence: None)
  Receive Date: 20140210
  Receipt Date: 20140210
  Transmission Date: 20141002
  Serious: Yes (Hospitalization)
  Sender: FDA-Public Use
  Company Number: SYM-2014-16364

PATIENT
  Age: 66 Year
  Sex: Female

DRUGS (1)
  1. XENAZINE (12.5 MILLIGRAM, TABLET) (TETRABENAZINE) [Suspect]
     Indication: DYSKINESIA
     Dosage: 3 IN 1 D
     Route: 048
     Dates: start: 20121024

REACTIONS (1)
  - Nervous system disorder [None]
